FAERS Safety Report 4289347-X (Version None)
Quarter: 2004Q1

REPORT INFORMATION
  Report Type: 
  Country: None (occurrence: None)
  Receive Date: 20040203
  Receipt Date: 20010209
  Transmission Date: 20041129
  Serious: Yes (Other)
  Sender: FDA-Public Use
  Company Number: 2001-008

PATIENT
  Age: 29 Year
  Sex: Female
  Weight: 68.0396 kg

DRUGS (3)
  1. DORYX [Suspect]
     Dosage: 100 MG BID ORAL
     Route: 048
     Dates: start: 20001223, end: 20001229
  2. DORYX [Suspect]
     Dosage: 100 MG BID ORAL
     Route: 048
     Dates: start: 20010119, end: 20010125
  3. RUBELLA VACCINE [Concomitant]

REACTIONS (1)
  - RASH [None]
